FAERS Safety Report 21754715 (Version 6)
Quarter: 2024Q1

REPORT INFORMATION
  Report Type: Spontaneous
  Country: US (occurrence: US)
  Receive Date: 20221220
  Receipt Date: 20240301
  Transmission Date: 20240410
  Serious: Yes (Death, Other)
  Sender: FDA-Public Use
  Company Number: US-PFIZER INC-PV202200127268

PATIENT
  Age: 89 Year
  Sex: Male
  Weight: 75.193 kg

DRUGS (10)
  1. VYNDAMAX [Suspect]
     Active Substance: TAFAMIDIS
     Indication: Acquired ATTR amyloidosis
     Dosage: 61 MG, 1X/DAY
     Route: 048
  2. ALLOPURINOL [Concomitant]
     Active Substance: ALLOPURINOL
     Dosage: 100 MG, 1X/DAY
     Route: 048
  3. AMLODIPINE [Concomitant]
     Active Substance: AMLODIPINE BESYLATE
     Dosage: 5 MG, 1X/DAY
     Route: 048
  4. ASPIRIN [Concomitant]
     Active Substance: ASPIRIN
     Dosage: LOW DOSE 81 TABLET, DELAYED RELEASE, EVERY OTHER DAY
  5. COENZYME Q10 [Concomitant]
     Active Substance: DIETARY SUPPLEMENT\UBIDECARENONE
     Dosage: 1 DF, DAILY
  6. CRESTOR [Concomitant]
     Active Substance: ROSUVASTATIN CALCIUM
     Dosage: 1/2 BY MOUTH M W F
     Route: 048
  7. LEVOTHYROXINE [Concomitant]
     Active Substance: LEVOTHYROXINE\LEVOTHYROXINE SODIUM
     Dosage: 75 UG, DAILY
  8. NITROGLYCERIN [Concomitant]
     Active Substance: NITROGLYCERIN
     Indication: Chest pain
     Dosage: 0.4 MG, AS NEEDED
     Route: 060
  9. OMEGA 3,6+9 [Concomitant]
     Dosage: 200 MG, 1X/DAY
     Route: 048
  10. TAMSULOSIN [Concomitant]
     Active Substance: TAMSULOSIN
     Dosage: 0.4 MG, 1X/DAY
     Route: 048

REACTIONS (11)
  - Death [Fatal]
  - Pulmonary oedema [Unknown]
  - Pleural effusion [Unknown]
  - Asthenia [Unknown]
  - Headache [Unknown]
  - Gait disturbance [Unknown]
  - Muscular weakness [Unknown]
  - Malaise [Unknown]
  - Dyspnoea [Unknown]
  - Migraine [Unknown]
  - Illness [Unknown]

NARRATIVE: CASE EVENT DATE: 20220101
